FAERS Safety Report 24307402 (Version 2)
Quarter: 2024Q4

REPORT INFORMATION
  Report Type: Spontaneous
  Country: TW (occurrence: TW)
  Receive Date: 20240911
  Receipt Date: 20241025
  Transmission Date: 20250114
  Serious: Yes (Other)
  Sender: ALEXION PHARMACEUTICALS
  Company Number: 2024A203374

PATIENT
  Age: 39 Year
  Weight: 112.8 kg

DRUGS (16)
  1. QUETIAPINE [Suspect]
     Active Substance: QUETIAPINE
     Indication: Antipsychotic therapy
     Dosage: 450 MILLIGRAM, QD
  2. QUETIAPINE [Suspect]
     Active Substance: QUETIAPINE
     Dosage: 450 MILLIGRAM, QD
  3. QUETIAPINE [Suspect]
     Active Substance: QUETIAPINE
     Dosage: 450 MILLIGRAM, QD
  4. QUETIAPINE [Suspect]
     Active Substance: QUETIAPINE
     Dosage: 450 MILLIGRAM, QD
  5. QUETIAPINE [Suspect]
     Active Substance: QUETIAPINE
     Dosage: 200 MILLIGRAM, QD
  6. QUETIAPINE [Suspect]
     Active Substance: QUETIAPINE
     Dosage: 200 MILLIGRAM, QD
  7. QUETIAPINE [Suspect]
     Active Substance: QUETIAPINE
     Dosage: 200 MILLIGRAM, QD
  8. QUETIAPINE [Suspect]
     Active Substance: QUETIAPINE
     Dosage: 200 MILLIGRAM, QD
  9. HALOPERIDOL [Suspect]
     Active Substance: HALOPERIDOL
     Indication: Antipsychotic therapy
     Dosage: 20 MILLIGRAM, QD
  10. HALOPERIDOL [Suspect]
     Active Substance: HALOPERIDOL
  11. HALOPERIDOL [Suspect]
     Active Substance: HALOPERIDOL
     Dosage: 10 MILLIGRAM, QD
  12. LEVETIRACETAM [Suspect]
     Active Substance: LEVETIRACETAM
     Indication: Antipsychotic therapy
     Dosage: 1000 MILLIGRAM, QD
  13. RISPERIDONE [Concomitant]
     Active Substance: RISPERIDONE
     Indication: Antipsychotic therapy
  14. AMISULPRIDE [Concomitant]
     Active Substance: AMISULPRIDE
     Indication: Antipsychotic therapy
  15. FLUPENTIXOL [Concomitant]
     Active Substance: FLUPENTIXOL
     Indication: Antipsychotic therapy
  16. VALPROATE [Concomitant]
     Active Substance: VALPROIC ACID
     Indication: Antipsychotic therapy

REACTIONS (5)
  - Psychiatric decompensation [Unknown]
  - Behaviour disorder [Unknown]
  - Insomnia [Unknown]
  - Generalised tonic-clonic seizure [Unknown]
  - Drug ineffective [Unknown]
